FAERS Safety Report 9081020 (Version 2)
Quarter: 2013Q1

REPORT INFORMATION
  Report Type: Spontaneous
  Country: US (occurrence: US)
  Receive Date: 20130218
  Receipt Date: 20130326
  Transmission Date: 20140127
  Serious: No
  Sender: FDA-Public Use
  Company Number: US-PFIZER INC-2013059408

PATIENT
  Age: 61 Year
  Sex: Female
  Weight: 68.93 kg

DRUGS (29)
  1. ADVIL [Suspect]
     Indication: SPONDYLITIS
     Dosage: 800 MG, 2X/DAY
  2. ADVIL [Suspect]
     Indication: NECK PAIN
  3. ADVIL [Suspect]
     Indication: MYALGIA
  4. ADVIL [Suspect]
     Indication: SCIATICA
  5. LYRICA [Suspect]
     Indication: SPONDYLITIS
     Dosage: 150 MG, DAILY
     Dates: start: 2012, end: 2012
  6. LYRICA [Suspect]
     Indication: NECK PAIN
  7. LYRICA [Suspect]
     Indication: MYALGIA
  8. LYRICA [Suspect]
     Indication: SCIATICA
  9. ASPIRIN [Suspect]
     Indication: SPONDYLITIS
     Dosage: UNK
  10. ASPIRIN [Suspect]
     Indication: NECK PAIN
  11. ASPIRIN [Suspect]
     Indication: MYALGIA
  12. ASPIRIN [Suspect]
     Indication: SCIATICA
  13. TENORMIN [Suspect]
     Indication: HEART RATE INCREASED
     Dosage: 50 MG, 1X/DAY
     Dates: start: 2003
  14. VICODIN [Suspect]
     Indication: SPONDYLITIS
     Dosage: UNK
  15. VICODIN [Suspect]
     Indication: NECK PAIN
  16. VICODIN [Suspect]
     Indication: MYALGIA
  17. VICODIN [Suspect]
     Indication: SCIATICA
  18. FLANAX [Suspect]
     Indication: SPONDYLITIS
     Dosage: UNK
  19. FLANAX [Suspect]
     Indication: NECK PAIN
  20. FLANAX [Suspect]
     Indication: MYALGIA
  21. FLANAX [Suspect]
     Indication: SCIATICA
  22. EXCEDRIN (ASPIRIN/CAFFEINE/PARACETAMOL) [Suspect]
     Indication: SPONDYLITIS
     Dosage: UNK
  23. EXCEDRIN (ASPIRIN/CAFFEINE/PARACETAMOL) [Suspect]
     Indication: NECK PAIN
  24. EXCEDRIN (ASPIRIN/CAFFEINE/PARACETAMOL) [Suspect]
     Indication: MYALGIA
  25. EXCEDRIN (ASPIRIN/CAFFEINE/PARACETAMOL) [Suspect]
     Indication: SCIATICA
  26. ALEVE [Suspect]
     Indication: SPONDYLITIS
     Dosage: UNK
  27. ALEVE [Suspect]
     Indication: NECK PAIN
  28. ALEVE [Suspect]
     Indication: MYALGIA
  29. ALEVE [Suspect]
     Indication: SCIATICA

REACTIONS (10)
  - Wrong technique in drug usage process [Unknown]
  - Drug ineffective [Unknown]
  - Tinnitus [Recovered/Resolved]
  - Gastroenteritis viral [Recovered/Resolved]
  - Vomiting [Recovered/Resolved]
  - Dehydration [Recovered/Resolved]
  - Somnolence [Recovered/Resolved]
  - Fatigue [Unknown]
  - Burning sensation [Unknown]
  - Respiratory disorder [Recovered/Resolved]
